FAERS Safety Report 6876747-4 (Version None)
Quarter: 2010Q2

REPORT INFORMATION
  Report Type: 
  Country: None (occurrence: None)
  Receive Date: 20100616
  Receipt Date: 20100426
  Transmission Date: 20101027
  Serious: No
  Sender: FDA-Public Use
  Company Number: DSA_43067_2010

PATIENT
  Sex: Female

DRUGS (3)
  1. XENAZINE [Suspect]
     Indication: HUNTINGTON'S CHOREA
     Dosage: 75 MG, 50 MG IN THE AM, AND 25 MG AT NIGHT ORAL, ORAL
     Route: 048
     Dates: start: 20090101
  2. NEXIUM [Concomitant]
  3. ATIVAN [Concomitant]

REACTIONS (1)
  - INSOMNIA [None]
